FAERS Safety Report 5512243-4 (Version None)
Quarter: 2007Q4

REPORT INFORMATION
  Report Type: 
  Country: None (occurrence: None)
  Receive Date: 20071108
  Receipt Date: 20071108
  Transmission Date: 20080405
  Serious: No
  Sender: FDA-Public Use
  Company Number: None

PATIENT
  Sex: Male

DRUGS (1)
  1. PAROXETINE [Suspect]
     Indication: AUTISM
     Dosage: 20MG DAILY
     Dates: start: 20030820, end: 20031105

REACTIONS (1)
  - DRUG INEFFECTIVE [None]
